FAERS Safety Report 6457391-X (Version None)
Quarter: 2009Q4

REPORT INFORMATION
  Report Type: 
  Country: None (occurrence: None)
  Receive Date: 20091125
  Receipt Date: 20091120
  Transmission Date: 20100525
  Serious: Yes (Other)
  Sender: FDA-Public Use
  Company Number: GB-MERCK-0911GBR00013

PATIENT
  Age: 67 Year
  Sex: Female
  Weight: 96 kg

DRUGS (1)
  1. JANUVIA [Suspect]
     Indication: DIABETES MELLITUS
     Route: 048
     Dates: start: 20090314, end: 20090327

REACTIONS (2)
  - DIZZINESS [None]
  - NAUSEA [None]
